FAERS Safety Report 11174078 (Version 1)
Quarter: 2015Q2

REPORT INFORMATION
  Report Type: Spontaneous
  Country: GB (occurrence: None)
  Receive Date: 20150605
  Receipt Date: 20150605
  Transmission Date: 20150821
  Serious: Yes (Other)
  Sender: FDA-Public Use
  Company Number: GB-DEXPHARM-20150343

PATIENT
  Age: 65 Year
  Sex: Female

DRUGS (1)
  1. OMEPRAZOLE. [Suspect]
     Active Substance: OMEPRAZOLE
     Indication: DYSPEPSIA

REACTIONS (8)
  - Gastrooesophageal reflux disease [None]
  - Drug ineffective [None]
  - Infrequent bowel movements [None]
  - Withdrawal syndrome [None]
  - Abdominal pain upper [None]
  - Eructation [None]
  - Dyspepsia [None]
  - Chest pain [None]
